FAERS Safety Report 6837886-7 (Version None)
Quarter: 2010Q3

REPORT INFORMATION
  Report Type: 
  Country: None (occurrence: None)
  Receive Date: 20100713
  Receipt Date: 20070526
  Transmission Date: 20110219
  Serious: Yes (Other)
  Sender: FDA-Public Use
  Company Number: US-PFIZER INC-2007042881

PATIENT
  Sex: Male
  Weight: 113.63 kg

DRUGS (13)
  1. CHANTIX [Suspect]
     Indication: SMOKING CESSATION THERAPY
     Dates: start: 20070510
  2. BUPROPION [Concomitant]
  3. DOXYCYCLINE [Concomitant]
  4. MULTI-VITAMINS [Concomitant]
  5. ACETYLSALICYLIC ACID [Concomitant]
  6. STOOL SOFTENER [Concomitant]
  7. TEMAZEPAM [Concomitant]
  8. TESTOSTERONE [Concomitant]
  9. SPIRIVA [Concomitant]
  10. PROVENTIL TABLET [Concomitant]
  11. FLONASE [Concomitant]
  12. RESTORIL [Concomitant]
  13. WELLBUTRIN [Concomitant]

REACTIONS (1)
  - VISUAL FIELD DEFECT [None]
